FAERS Safety Report 9875459 (Version 1)
Quarter: 2014Q1

REPORT INFORMATION
  Report Type: Spontaneous
  Country: US (occurrence: None)
  Receive Date: 20140205
  Receipt Date: 20140205
  Transmission Date: 20141002
  Serious: Yes (Hospitalization)
  Sender: FDA-Public Use
  Company Number: None

PATIENT
  Age: 58 Year
  Sex: Male

DRUGS (2)
  1. XTANDI [Suspect]
     Indication: PROSTATE CANCER
     Dosage: 4 CAPS QID PO
     Route: 048
     Dates: start: 20140107
  2. PROVENGE [Concomitant]

REACTIONS (4)
  - Asthenia [None]
  - Fatigue [None]
  - Dyspnoea [None]
  - Pain [None]
